FAERS Safety Report 9422203 (Version 3)
Quarter: 2013Q3

REPORT INFORMATION
  Report Type: Report from Study
  Country: DE (occurrence: DE)
  Receive Date: 20130726
  Receipt Date: 20130809
  Transmission Date: 20140515
  Serious: Yes (Hospitalization)
  Sender: FDA-Public Use
  Company Number: DE-JNJFOC-20130712064

PATIENT
  Sex: Female
  Weight: 68 kg

DRUGS (4)
  1. REMICADE [Suspect]
     Indication: COLITIS ULCERATIVE
     Route: 042
     Dates: start: 20091104, end: 20110808
  2. HUMIRA [Concomitant]
     Indication: COLITIS ULCERATIVE
     Route: 058
     Dates: start: 20111122, end: 20120918
  3. METRONIDAZOLE [Concomitant]
     Indication: COLITIS ULCERATIVE
     Route: 048
     Dates: start: 20121022, end: 20121125
  4. CIPROFLOXACIN [Concomitant]
     Indication: COLITIS ULCERATIVE
     Route: 048
     Dates: start: 20121022, end: 20121125

REACTIONS (1)
  - Breast cancer [Recovered/Resolved]
